FAERS Safety Report 24658067 (Version 1)
Quarter: 2024Q4

REPORT INFORMATION
  Report Type: Other
  Country: GB (occurrence: GB)
  Receive Date: 20241125
  Receipt Date: 20241125
  Transmission Date: 20250115
  Serious: Yes (Hospitalization, Other)
  Sender: STRIDES
  Company Number: None

PATIENT
  Age: 51 Year
  Sex: Female
  Weight: 55 kg

DRUGS (1)
  1. FLUOXETINE [Suspect]
     Active Substance: FLUOXETINE HYDROCHLORIDE
     Indication: Adverse drug reaction
     Dosage: 20MG, CAPSULE, HARD
     Route: 065
     Dates: start: 20240423, end: 20240424

REACTIONS (2)
  - Medication error [Unknown]
  - Seizure [None]

NARRATIVE: CASE EVENT DATE: 20240425
